FAERS Safety Report 11997621 (Version 1)
Quarter: 2016Q1

REPORT INFORMATION
  Report Type: Spontaneous
  Country: US (occurrence: US)
  Receive Date: 20160203
  Receipt Date: 20160203
  Transmission Date: 20160526
  Serious: No
  Sender: FDA-Public Use
  Company Number: US-ANACOR-2015ANA00154

PATIENT
  Age: 35 Year
  Sex: Female
  Weight: 108.84 kg

DRUGS (6)
  1. AMITIZA [Concomitant]
     Active Substance: LUBIPROSTONE
  2. PLAQUENIL [Concomitant]
     Active Substance: HYDROXYCHLOROQUINE SULFATE
  3. KERYDIN [Suspect]
     Active Substance: TAVABOROLE
     Indication: ONYCHOMYCOSIS
     Dosage: UNK UNK, 2X/DAY
     Route: 061
     Dates: start: 201506, end: 201506
  4. NEXIUM [Concomitant]
     Active Substance: ESOMEPRAZOLE MAGNESIUM
  5. CILOSTAZOL. [Concomitant]
     Active Substance: CILOSTAZOL
  6. LISINOPRIL. [Concomitant]
     Active Substance: LISINOPRIL

REACTIONS (6)
  - Onychomycosis [Not Recovered/Not Resolved]
  - Inappropriate schedule of drug administration [Recovered/Resolved]
  - Drug ineffective [Not Recovered/Not Resolved]
  - Ingrowing nail [Recovered/Resolved]
  - Application site rash [Recovered/Resolved]
  - Application site exfoliation [Recovered/Resolved]

NARRATIVE: CASE EVENT DATE: 201506
